FAERS Safety Report 4762283-8 (Version None)
Quarter: 2005Q3

REPORT INFORMATION
  Report Type: 
  Country: None (occurrence: None)
  Receive Date: 20050907
  Receipt Date: 20050826
  Transmission Date: 20060218
  Serious: Yes (Hospitalization)
  Sender: FDA-Public Use
  Company Number: PL-BOEHRINGER INGELHEIM PHARMACEUTICALS, INC.-2005-BP-15520YA

PATIENT
  Age: 78 Year
  Sex: Female

DRUGS (2)
  1. TAMSULOSIN HYDROCHLORIDE [Suspect]
     Route: 048
  2. HERBAL TABLETS [Concomitant]
     Indication: INSOMNIA
     Route: 048

REACTIONS (7)
  - ACCIDENTAL OVERDOSE [None]
  - BLOOD PRESSURE SYSTOLIC INCREASED [None]
  - DIZZINESS [None]
  - HEADACHE [None]
  - ORTHOSTATIC HYPOTENSION [None]
  - SINUS BRADYCARDIA [None]
  - SYNCOPE [None]
